FAERS Safety Report 7743186-3 (Version None)
Quarter: 2011Q3

REPORT INFORMATION
  Report Type: 
  Country: None (occurrence: None)
  Receive Date: 20110819
  Receipt Date: 20110513
  Transmission Date: 20111222
  Serious: No
  Sender: FDA-Public Use
  Company Number: 033072

PATIENT

DRUGS (1)
  1. LACOSAMIDE [Suspect]
     Indication: PARTIAL SEIZURES

REACTIONS (2)
  - CONVULSION [None]
  - VOMITING [None]
